FAERS Safety Report 11617219 (Version 2)
Quarter: 2015Q4

REPORT INFORMATION
  Report Type: Spontaneous
  Country: CH (occurrence: CH)
  Receive Date: 20151009
  Receipt Date: 20151023
  Transmission Date: 20160304
  Serious: Yes (Death, Hospitalization)
  Sender: FDA-Public Use
  Company Number: CH-BAYER-2015-433984

PATIENT
  Age: 61 Year
  Sex: Male
  Weight: 110 kg

DRUGS (10)
  1. DEXAMETHASON [Concomitant]
     Active Substance: DEXAMETHASONE
     Dosage: 1 MG, QD
  2. XOFIGO [Suspect]
     Active Substance: RADIUM RA-223 DICHLORIDE
     Indication: PROSTATE CANCER METASTATIC
     Dosage: 1 INJECTION
     Dates: start: 20150925
  3. DORMICUM [Concomitant]
     Active Substance: MIDAZOLAM\MIDAZOLAM HYDROCHLORIDE
     Indication: SEDATIVE THERAPY
  4. PANTOZOL [Concomitant]
     Active Substance: PANTOPRAZOLE SODIUM
     Dosage: 40 MG, QD
  5. SPIRIVA [Concomitant]
     Active Substance: TIOTROPIUM BROMIDE MONOHYDRATE
  6. MORPHIN [Concomitant]
     Active Substance: MORPHINE
     Dosage: 10 GTT, UNK
  7. CALPEROS [Concomitant]
     Active Substance: CALCIUM CARBONATE
     Dosage: UNK
  8. ZOLADEX LA [Concomitant]
     Active Substance: GOSERELIN ACETATE
     Dosage: UNK, Q3MON
     Route: 058
  9. XGEVA [Concomitant]
     Active Substance: DENOSUMAB
     Dosage: 120 MG, UNK
     Dates: end: 20150805
  10. TILUR [Concomitant]
     Active Substance: ACEMETACIN
     Dosage: UNK

REACTIONS (1)
  - Cerebral haemorrhage [Fatal]

NARRATIVE: CASE EVENT DATE: 20150927
